FAERS Safety Report 24017492 (Version 1)
Quarter: 2024Q2

REPORT INFORMATION
  Report Type: Other
  Country: CA (occurrence: CA)
  Receive Date: 20240627
  Receipt Date: 20240627
  Transmission Date: 20240715
  Serious: Yes (Other)
  Sender: FDA-Public Use
  Company Number: CA-CELLTRION INC.-2024CA014978

PATIENT

DRUGS (7)
  1. BEVACIZUMAB [Suspect]
     Active Substance: BEVACIZUMAB
     Indication: Ovarian cancer
     Dosage: UNK, 1 EVERY 2 WEEKS
     Route: 065
  2. CAMONSERTIB [Concomitant]
     Active Substance: CAMONSERTIB
     Indication: Ovarian cancer metastatic
     Dosage: 80 MILLIGRAM
     Route: 065
  3. CAMONSERTIB [Concomitant]
     Active Substance: CAMONSERTIB
     Dosage: 50 MILLIGRAM
     Route: 065
  4. CAMONSERTIB [Concomitant]
     Active Substance: CAMONSERTIB
     Dosage: 80 MILLIGRAM
     Route: 065
  5. GEMCITABINE [Concomitant]
     Active Substance: GEMCITABINE
     Indication: Ovarian cancer metastatic
     Dosage: 1000 MILLIGRAM
     Route: 065
  6. GEMCITABINE [Concomitant]
     Active Substance: GEMCITABINE
     Indication: Ovarian cancer metastatic
     Dosage: 200 MILLIGRAM
     Route: 065
  7. PACLITAXEL [Concomitant]
     Active Substance: PACLITAXEL
     Indication: Ovarian cancer
     Dosage: UNK, 1 EVERY 1 WEEK
     Route: 065

REACTIONS (3)
  - Ovarian cancer metastatic [Recovering/Resolving]
  - Neutropenia [Recovering/Resolving]
  - Therapy partial responder [Recovering/Resolving]
